FAERS Safety Report 5881837-9 (Version None)
Quarter: 2008Q3

REPORT INFORMATION
  Report Type: 
  Country: None (occurrence: None)
  Receive Date: 20080912
  Receipt Date: 20080711
  Transmission Date: 20090109
  Serious: No
  Sender: FDA-Public Use
  Company Number: US-ABBOTT-08P-163-0462768-00

PATIENT
  Sex: Female
  Weight: 59.02 kg

DRUGS (6)
  1. HUMIRA [Suspect]
     Indication: RHEUMATOID ARTHRITIS
     Route: 050
     Dates: start: 20050101, end: 20080101
  2. HUMIRA [Suspect]
     Route: 050
     Dates: start: 20080101, end: 20080301
  3. TRAZODONE HCL [Concomitant]
     Indication: PAIN
     Route: 048
  4. TRAZODONE HCL [Concomitant]
     Route: 048
  5. DICLOFENAC DIETHYLAMINE [Concomitant]
     Indication: PAIN
     Route: 048
  6. METHOTREXATE [Concomitant]
     Indication: RHEUMATOID ARTHRITIS
     Dosage: 2.5MG, 4 PILLS IN 1 WEEK
     Route: 048

REACTIONS (1)
  - DRUG INEFFECTIVE [None]
